FAERS Safety Report 4371715-9 (Version None)
Quarter: 2004Q2

REPORT INFORMATION
  Report Type: 
  Country: None (occurrence: None)
  Receive Date: 20040602
  Receipt Date: 20040519
  Transmission Date: 20050107
  Serious: Yes (Hospitalization)
  Sender: FDA-Public Use
  Company Number: 2004214704JP

PATIENT
  Age: 53 Year
  Sex: Female

DRUGS (3)
  1. AZULFIDINE EN-TABS [Suspect]
     Indication: RHEUMATOID ARTHRITIS
     Dosage: 1000MG/DAY, ORAL
     Route: 048
     Dates: start: 20030716, end: 20030813
  2. AURANOFIN [Concomitant]
  3. PREDNISOLONE [Concomitant]

REACTIONS (3)
  - COUGH [None]
  - LUNG DISORDER [None]
  - PYREXIA [None]
